FAERS Safety Report 8093169-1 (Version None)
Quarter: 2012Q1

REPORT INFORMATION
  Report Type: 
  Country: None (occurrence: None)
  Receive Date: 20120128
  Receipt Date: 20111005
  Transmission Date: 20120608
  Serious: No
  Sender: FDA-Public Use
  Company Number: US-ABBOTT-11P-163-0847249-00

PATIENT
  Age: 52 Year
  Sex: Female

DRUGS (8)
  1. SPIRIVA [Concomitant]
     Indication: CHRONIC OBSTRUCTIVE PULMONARY DISEASE
     Dosage: DAILY
  2. DONNATAL [Concomitant]
     Indication: UNEVALUABLE EVENT
     Dates: start: 20110201
  3. HUMIRA [Suspect]
     Indication: CROHN'S DISEASE
     Dates: start: 20110225
  4. CIPROFLOXACIN [Concomitant]
     Indication: URINARY TRACT INFECTION
  5. HUMIRA [Suspect]
     Dates: start: 20110619
  6. ADVAIR DISKUS 100/50 [Concomitant]
     Indication: CHRONIC OBSTRUCTIVE PULMONARY DISEASE
     Dosage: TWICE DAILY
  7. VICODIN [Concomitant]
     Indication: PAIN
  8. SOMA [Concomitant]
     Indication: NECK PAIN
     Dosage: THREE TIMES DAILY

REACTIONS (5)
  - FATIGUE [None]
  - ARTHRALGIA [None]
  - URINARY TRACT INFECTION [None]
  - MIGRAINE [None]
  - FOOT FRACTURE [None]
